FAERS Safety Report 5534273-9 (Version None)
Quarter: 2007Q4

REPORT INFORMATION
  Report Type: 
  Country: None (occurrence: None)
  Receive Date: 20071205
  Receipt Date: 20071128
  Transmission Date: 20080405
  Serious: Yes (Hospitalization, Other)
  Sender: FDA-Public Use
  Company Number: US-ROCHE-500011

PATIENT
  Age: 51 Year
  Sex: Female

DRUGS (2)
  1. PEGASYS [Suspect]
     Route: 065
     Dates: start: 20061121, end: 20071012
  2. RIBASPHERE [Suspect]
     Route: 065
     Dates: start: 20061121, end: 20071012

REACTIONS (31)
  - ANAEMIA [None]
  - ANOREXIA [None]
  - ARTHRALGIA [None]
  - ASTHENIA [None]
  - CHEST PAIN [None]
  - CONSTIPATION [None]
  - DEHYDRATION [None]
  - DEPRESSION [None]
  - DIABETES MELLITUS [None]
  - DIARRHOEA [None]
  - DYSPNOEA [None]
  - FATIGUE [None]
  - GLUCOSE TOLERANCE IMPAIRED [None]
  - HEADACHE [None]
  - HYPERHIDROSIS [None]
  - HYPOKALAEMIA [None]
  - HYPOTENSION [None]
  - INSOMNIA [None]
  - LABORATORY TEST ABNORMAL [None]
  - MELAENA [None]
  - MIGRAINE [None]
  - NECK PAIN [None]
  - NEUROPATHY [None]
  - PERIPHERAL COLDNESS [None]
  - PLATELET COUNT DECREASED [None]
  - POOR PERIPHERAL CIRCULATION [None]
  - RESPIRATORY TRACT INFECTION VIRAL [None]
  - SENSATION OF HEAVINESS [None]
  - VOMITING [None]
  - WEIGHT DECREASED [None]
  - WHITE BLOOD CELL COUNT DECREASED [None]
